FAERS Safety Report 8414664-9 (Version None)
Quarter: 2012Q2

REPORT INFORMATION
  Report Type: 
  Country: None (occurrence: None)
  Receive Date: 20120605
  Receipt Date: 20120521
  Transmission Date: 20120825
  Serious: Yes (Death)
  Sender: FDA-Public Use
  Company Number: GB-WATSON-2012-09371

PATIENT
  Age: 43 Year
  Sex: Male

DRUGS (12)
  1. PREDNISOLONE [Suspect]
     Indication: RENAL VASCULITIS
     Dosage: 60 MG, DAILY
     Route: 048
  2. CIPROFLOXACIN HCL [Suspect]
     Indication: MYCOBACTERIUM FORTUITUM INFECTION
     Dosage: 500 MG, BID
     Route: 065
  3. MEROPENEM [Suspect]
     Indication: SEPSIS SYNDROME
     Dosage: 1 G, BID
     Route: 051
  4. AMIKACIN [Suspect]
     Indication: MYCOBACTERIUM FORTUITUM INFECTION
  5. AMPHOTERICIN B [Suspect]
     Indication: ASPERGILLOSIS
  6. PREDNISOLONE [Suspect]
     Indication: PULMONARY VASCULITIS
  7. VORICONAZOLE [Suspect]
     Indication: ASPERGILLOSIS
     Dosage: UNK
     Route: 065
  8. CYCLOPHOSPHAMIDE [Suspect]
     Indication: PULMONARY VASCULITIS
  9. OSELTAMIVIR [Suspect]
     Indication: SEPSIS SYNDROME
     Dosage: 75 MG, BID
     Route: 051
  10. CLARITHROMYCIN [Suspect]
     Indication: MYCOBACTERIUM FORTUITUM INFECTION
     Dosage: 500 MG, BID
     Route: 065
  11. TEICOPLANIN [Suspect]
     Indication: SEPSIS SYNDROME
     Dosage: 400 MG, DAILY
     Route: 051
  12. CYCLOPHOSPHAMIDE [Suspect]
     Indication: RENAL VASCULITIS
     Dosage: 100 MG, DAILY
     Route: 048

REACTIONS (13)
  - NEUTROPENIA [None]
  - INFLUENZA A VIRUS TEST POSITIVE [None]
  - HAEMOPTYSIS [None]
  - ASPERGILLOSIS [None]
  - LIVER INJURY [None]
  - MYCOBACTERIUM FORTUITUM INFECTION [None]
  - RENAL FAILURE ACUTE [None]
  - DYSPNOEA [None]
  - SEPSIS SYNDROME [None]
  - RIGHT VENTRICULAR FAILURE [None]
  - CARDIO-RESPIRATORY ARREST [None]
  - RESPIRATORY FAILURE [None]
  - CHOLESTASIS [None]
